FAERS Safety Report 10047502 (Version 1)
Quarter: 2014Q1

REPORT INFORMATION
  Report Type: Spontaneous
  Country: ES (occurrence: None)
  Receive Date: 20140327
  Receipt Date: 20140327
  Transmission Date: 20141002
  Serious: Yes (Other)
  Sender: FDA-Public Use
  Company Number: FK201303037

PATIENT
  Age: 17 Year
  Sex: Male

DRUGS (1)
  1. POTASSIUM CHLORIDE [Suspect]
     Indication: HYPOVOLAEMIA
     Route: 042
     Dates: start: 20121019, end: 20121019

REACTIONS (6)
  - Hypotension [None]
  - Embolism [None]
  - Bradycardia [None]
  - Incorrect dose administered [None]
  - Cardiac disorder [None]
  - Wrong technique in drug usage process [None]
